FAERS Safety Report 24956051 (Version 1)
Quarter: 2025Q1

REPORT INFORMATION
  Report Type: Spontaneous
  Country: US (occurrence: None)
  Receive Date: 20250211
  Receipt Date: 20250211
  Transmission Date: 20250409
  Serious: Yes (Other)
  Sender: FDA-CTU
  Company Number: None

PATIENT
  Age: 66 Year
  Sex: Female
  Weight: 85.7 kg

DRUGS (1)
  1. MULTIHANCE [Suspect]
     Active Substance: GADOBENATE DIMEGLUMINE
     Indication: Imaging procedure

REACTIONS (7)
  - Eye pruritus [None]
  - Ear pruritus [None]
  - Sneezing [None]
  - Throat irritation [None]
  - Blood pressure increased [None]
  - Heart rate increased [None]
  - Contrast media reaction [None]

NARRATIVE: CASE EVENT DATE: 20250210
